FAERS Safety Report 5198958-9 (Version None)
Quarter: 2006Q4

REPORT INFORMATION
  Report Type: 
  Country: None (occurrence: None)
  Receive Date: 20061016
  Receipt Date: 20060727
  Transmission Date: 20070319
  Serious: No
  Sender: FDA-Public Use
  Company Number: 2006SP002830

PATIENT
  Age: 63 Year
  Sex: Female
  Weight: 81.6475 kg

DRUGS (5)
  1. LUNESTA [Suspect]
     Indication: INSOMNIA
     Dosage: 2 MG; HS; ORAL
     Route: 048
     Dates: start: 20050101
  2. ANASTROZOLE [Concomitant]
  3. LEVOTHYROXINE SODIUM [Concomitant]
  4. PREVACID [Concomitant]
  5. TOLTERODINE [Concomitant]

REACTIONS (2)
  - MEMORY IMPAIRMENT [None]
  - SOMNOLENCE [None]
